FAERS Safety Report 7436898-2 (Version None)
Quarter: 2011Q2

REPORT INFORMATION
  Report Type: 
  Country: None (occurrence: None)
  Receive Date: 20110426
  Receipt Date: 20110412
  Transmission Date: 20111010
  Serious: Yes (Hospitalization)
  Sender: FDA-Public Use
  Company Number: US-JNJFOC-20110202036

PATIENT
  Sex: Male
  Weight: 77.2 kg

DRUGS (13)
  1. VICODIN [Concomitant]
     Dosage: 5/500 MG
  2. MULTI-VITAMINS [Concomitant]
  3. CIMZIA [Concomitant]
     Indication: INFLAMMATORY BOWEL DISEASE
  4. HYDROCORTISONE [Concomitant]
  5. PEPCID [Concomitant]
  6. MESALAMINE [Concomitant]
  7. AZATHIOPRINE [Concomitant]
  8. DILAUDID [Concomitant]
  9. REMICADE [Suspect]
     Indication: INFLAMMATORY BOWEL DISEASE
     Route: 042
  10. PREDNISONE [Concomitant]
  11. ANTIBIOTICS [Concomitant]
     Indication: INFLAMMATORY BOWEL DISEASE
  12. OSCAL VITAMIN D [Concomitant]
  13. IRON SUPPLEMENT [Concomitant]

REACTIONS (1)
  - INFLAMMATORY BOWEL DISEASE [None]
